FAERS Safety Report 16303469 (Version 2)
Quarter: 2019Q2

REPORT INFORMATION
  Report Type: Spontaneous
  Country: GR (occurrence: GR)
  Receive Date: 20190513
  Receipt Date: 20190603
  Transmission Date: 20190711
  Serious: Yes (Life-Threatening, Hospitalization, Other)
  Sender: FDA-Public Use
  Company Number: GR-MACLEODS PHARMACEUTICALS US LTD-MAC2019021208

PATIENT

DRUGS (2)
  1. OLANZAPINE 5MG TABLET [Suspect]
     Active Substance: OLANZAPINE
     Indication: PRODUCT USED FOR UNKNOWN INDICATION
     Dosage: 28 DOSAGE FORM, 28 TABLETS (IMMEDIATE RELEASE) OF 5 MG OLANZAPIN COMBINED WITH ALCOHOL
     Route: 048
  2. OXCARBAZEPINE. [Suspect]
     Active Substance: OXCARBAZEPINE
     Indication: PRODUCT USED FOR UNKNOWN INDICATION
     Dosage: 50 DOSAGE FORM, 50 TABLETS (IMMEDIATE RELAESE) OF 600 MILLIGRAM COMBINED WITH ALCOHOL
     Route: 048

REACTIONS (6)
  - Poisoning [Recovered/Resolved]
  - Hyponatraemia [Recovered/Resolved]
  - Dysarthria [Unknown]
  - Intentional overdose [Unknown]
  - Toxicity to various agents [Unknown]
  - Somnolence [Recovered/Resolved]
